FAERS Safety Report 10042611 (Version 1)
Quarter: 2014Q1

REPORT INFORMATION
  Report Type: Spontaneous
  Country: US (occurrence: None)
  Receive Date: 20140325
  Receipt Date: 20140325
  Transmission Date: 20141002
  Serious: Yes (Hospitalization, Other)
  Sender: FDA-Public Use
  Company Number: 2014AP002082

PATIENT
  Age: 28 Year
  Sex: Male

DRUGS (5)
  1. RANITIDINE HCL [Suspect]
     Indication: GASTROOESOPHAGEAL REFLUX DISEASE
     Route: 048
  2. DILANTIN [Suspect]
  3. KLONOPIN [Concomitant]
  4. RANITIDINE [Concomitant]
  5. HYDROCHLORIDE [Concomitant]

REACTIONS (3)
  - Drug interaction [None]
  - Convulsion [None]
  - Product substitution issue [None]
